FAERS Safety Report 8021810-8 (Version None)
Quarter: 2012Q1

REPORT INFORMATION
  Report Type: 
  Country: None (occurrence: None)
  Receive Date: 20120104
  Receipt Date: 20111227
  Transmission Date: 20120608
  Serious: Yes (Hospitalization)
  Sender: FDA-Public Use
  Company Number: US-SP-2010-02354

PATIENT
  Age: 73 Year
  Sex: Male

DRUGS (1)
  1. TICE BCG [Suspect]
     Indication: BLADDER CANCER
     Route: 043
     Dates: start: 20050101, end: 20050101

REACTIONS (6)
  - BOVINE TUBERCULOSIS [None]
  - HEADACHE [None]
  - BRAIN MASS [None]
  - TUBERCULOMA OF CENTRAL NERVOUS SYSTEM [None]
  - TREMOR [None]
  - DIZZINESS [None]
